FAERS Safety Report 4345559-8 (Version None)
Quarter: 2004Q1

REPORT INFORMATION
  Report Type: 
  Country: None (occurrence: None)
  Receive Date: 20040325
  Receipt Date: 20040211
  Transmission Date: 20041129
  Serious: No
  Sender: FDA-Public Use
  Company Number: USA040259075

PATIENT
  Age: 79 Year
  Sex: Female

DRUGS (6)
  1. FORTEO [Suspect]
     Indication: OSTEOPOROSIS
  2. LIPITOR [Concomitant]
  3. NITRO PATCH (GLYCERYL TRINITRATE) [Concomitant]
  4. ASPIRIN [Concomitant]
  5. PREVACID [Concomitant]
  6. ULTRACET [Concomitant]

REACTIONS (2)
  - DIZZINESS [None]
  - HYPERHIDROSIS [None]
